FAERS Safety Report 6869755-0 (Version None)
Quarter: 2010Q3

REPORT INFORMATION
  Report Type: 
  Country: None (occurrence: None)
  Receive Date: 20100722
  Receipt Date: 20081001
  Transmission Date: 20110219
  Serious: No
  Sender: FDA-Public Use
  Company Number: US-PFIZER INC-2008067880

PATIENT
  Sex: Female

DRUGS (2)
  1. CHANTIX [Suspect]
     Dates: start: 20080317, end: 20080101
  2. DRUG, UNSPECIFIED [Interacting]

REACTIONS (4)
  - DRUG INTERACTION [None]
  - MOTION SICKNESS [None]
  - VERTIGO [None]
  - VERTIGO POSITIONAL [None]
